FAERS Safety Report 8171983-1 (Version None)
Quarter: 2012Q1

REPORT INFORMATION
  Report Type: 
  Country: None (occurrence: None)
  Receive Date: 20120228
  Receipt Date: 20120217
  Transmission Date: 20120608
  Serious: Yes (Other)
  Sender: FDA-Public Use
  Company Number: DE-FRI-1000028622

PATIENT
  Sex: Male

DRUGS (3)
  1. SIBELIUM [Concomitant]
     Indication: DIZZINESS
  2. MEMANTINE [Suspect]
     Indication: DEMENTIA ALZHEIMER'S TYPE
     Dosage: 20 MG
  3. ASPIRIN TAB [Concomitant]

REACTIONS (5)
  - GAIT DISTURBANCE [None]
  - PERSONALITY CHANGE [None]
  - RASH [None]
  - DIZZINESS [None]
  - CIRCULATORY COLLAPSE [None]
